FAERS Safety Report 6349130-8 (Version None)
Quarter: 2009Q3

REPORT INFORMATION
  Report Type: 
  Country: None (occurrence: None)
  Receive Date: 20090911
  Receipt Date: 20090902
  Transmission Date: 20100115
  Serious: Yes (Hospitalization)
  Sender: FDA-Public Use
  Company Number: US-ABBOTT-09P-163-0590042-00

PATIENT
  Sex: Female
  Weight: 85.806 kg

DRUGS (15)
  1. KALETRA [Suspect]
     Indication: HIV INFECTION
     Route: 048
     Dates: start: 20080910, end: 20090723
  2. KALETRA [Suspect]
     Dates: start: 20090812
  3. ISENTRESS [Suspect]
     Indication: HIV INFECTION
     Route: 048
     Dates: start: 20080910, end: 20090723
  4. ISENTRESS [Suspect]
     Dates: start: 20090812
  5. LASIX [Concomitant]
     Indication: HYPERTENSION
     Dates: start: 20080707, end: 20081002
  6. LASIX [Concomitant]
     Indication: GENERALISED OEDEMA
  7. POTASSIUM CHLORIDE [Concomitant]
     Indication: ELECTROLYTE SUBSTITUTION THERAPY
     Dates: start: 20080707, end: 20081002
  8. BUMETANIDE [Concomitant]
     Indication: GENERALISED OEDEMA
     Dates: start: 20081002, end: 20081201
  9. BUMETANIDE [Concomitant]
     Indication: HYPERTENSION
  10. ACYCLOVIR [Concomitant]
     Indication: GENITAL HERPES
     Dates: start: 20081103
  11. CORCIDIN HBP [Concomitant]
     Indication: NASOPHARYNGITIS
     Dates: start: 20081228, end: 20090102
  12. ATENOLOL [Concomitant]
     Indication: HYPERTENSION
     Dates: start: 20081223, end: 20090723
  13. ALKA SELTZER PLUS COLD [Concomitant]
     Indication: NASOPHARYNGITIS
     Dates: start: 20090223, end: 20090226
  14. ACCUPRIL [Concomitant]
     Indication: HYPERTENSION
     Dates: start: 20090309
  15. TORASEMIDE [Concomitant]
     Indication: HYPERTENSION
     Dates: start: 20090309, end: 20090723

REACTIONS (1)
  - RENAL FAILURE [None]
